FAERS Safety Report 7981985-3 (Version None)
Quarter: 2011Q4

REPORT INFORMATION
  Report Type: 
  Country: None (occurrence: None)
  Receive Date: 20111213
  Receipt Date: 20111205
  Transmission Date: 20120403
  Serious: Yes (Other)
  Sender: FDA-Public Use
  Company Number: 2008US002920

PATIENT
  Age: 12 Year
  Sex: Female

DRUGS (1)
  1. PROGRAF [Suspect]
     Indication: LIVER TRANSPLANT

REACTIONS (3)
  - EVANS SYNDROME [None]
  - MENORRHAGIA [None]
  - GINGIVAL BLEEDING [None]
